FAERS Safety Report 8959594 (Version 1)
Quarter: 2012Q4

REPORT INFORMATION
  Report Type: 
  Country: US (occurrence: US)
  Receive Date: 20121211
  Receipt Date: 20121211
  Transmission Date: 20130627
  Serious: No
  Sender: FDA-Public Use
  Company Number: US-ASTRAZENECA-2012SE87379

PATIENT
  Age: 95 Year
  Sex: Female

DRUGS (6)
  1. NEXIUM [Suspect]
     Indication: GASTROOESOPHAGEAL REFLUX DISEASE
     Route: 048
     Dates: start: 201211
  2. NEXIUM [Suspect]
     Indication: GASTROOESOPHAGEAL REFLUX DISEASE
     Route: 048
     Dates: start: 20121115
  3. NORVASC [Concomitant]
     Indication: BLOOD PRESSURE ABNORMAL
  4. HYDROCHLOROTHIAZIDE [Concomitant]
     Indication: BLOOD PRESSURE ABNORMAL
  5. LIDODERM PATCH [Concomitant]
     Indication: BACK PAIN
  6. LEVOXYL [Concomitant]
     Indication: THYROID DISORDER

REACTIONS (6)
  - Eye disorder [Unknown]
  - Eye irritation [Unknown]
  - Palatal disorder [Unknown]
  - Dysphagia [Unknown]
  - Abdominal discomfort [Unknown]
  - Malaise [Unknown]
